FAERS Safety Report 5492897-1 (Version None)
Quarter: 2007Q4

REPORT INFORMATION
  Report Type: 
  Country: None (occurrence: None)
  Receive Date: 20071018
  Receipt Date: 20071001
  Transmission Date: 20080405
  Serious: Yes (Death)
  Sender: FDA-Public Use
  Company Number: GB-1164254

PATIENT
  Age: 85 Year
  Sex: Female

DRUGS (7)
  1. BETOPTIC S (BETAXOLOL HYDROCHLORIDE) 0.25 % SUSPENSION EYE DROPS, SUSP [Suspect]
     Indication: GLAUCOMA
     Dosage: OPHTHALMIC
     Route: 047
  2. TIMOLOL MALEATE [Suspect]
     Indication: GLAUCOMA
     Dosage: 1 DF 2/1 DAYS OPHTHALMIC
     Route: 047
     Dates: start: 20040101
  3. ADCAL (CARBAZOCHROME) [Concomitant]
  4. CANDESARTAN (CANDESARTAN) [Concomitant]
  5. CIPROFIBRATE (CIPROFIBRATE) [Concomitant]
  6. FUROSEMIDE [Concomitant]
  7. RISEDRONATE SODIUM [Concomitant]

REACTIONS (5)
  - ARRHYTHMIA [None]
  - ATRIAL FIBRILLATION [None]
  - DRUG EFFECT DECREASED [None]
  - PRESYNCOPE [None]
  - WHEEZING [None]
